FAERS Safety Report 4762107-9 (Version None)
Quarter: 2005Q3

REPORT INFORMATION
  Report Type: 
  Country: None (occurrence: None)
  Receive Date: 20050901
  Receipt Date: 20050509
  Transmission Date: 20060218
  Serious: No
  Sender: FDA-Public Use
  Company Number: 200510926BWH

PATIENT
  Sex: Male

DRUGS (3)
  1. LEVITRA [Suspect]
     Indication: ERECTILE DYSFUNCTION
     Dosage: 20 MG TOTAL DAILY ORAL
     Route: 048
  2. MIRAPEX [Concomitant]
  3. ACTEGOL [Concomitant]

REACTIONS (2)
  - VISUAL BRIGHTNESS [None]
  - VISUAL DISTURBANCE [None]
